FAERS Safety Report 9918001 (Version 2)
Quarter: 2014Q2

REPORT INFORMATION
  Report Type: Spontaneous
  Country: US (occurrence: US)
  Receive Date: 20140222
  Receipt Date: 20140625
  Transmission Date: 20141212
  Serious: No
  Sender: FDA-Public Use
  Company Number: US-009507513-1402USA010703

PATIENT
  Age: 82 Year
  Sex: Female
  Weight: 47.17 kg

DRUGS (2)
  1. OXYTROL FOR WOMEN [Suspect]
     Indication: MICTURITION URGENCY
     Dosage: UNK, UNKNOWN
     Route: 062
     Dates: end: 20140202
  2. OXYTROL FOR WOMEN [Suspect]
     Indication: POLLAKIURIA

REACTIONS (2)
  - Erythema [Recovered/Resolved]
  - Drug effect decreased [Unknown]
